FAERS Safety Report 13077186 (Version 1)
Quarter: 2016Q4

REPORT INFORMATION
  Report Type: Spontaneous
  Country: US (occurrence: US)
  Receive Date: 20161230
  Receipt Date: 20161230
  Transmission Date: 20170207
  Serious: No
  Sender: FDA-Public Use
  Company Number: US-DRREDDYS-DRL/USA/16/0078364

PATIENT
  Age: 55 Year
  Sex: Female
  Weight: 90.72 kg

DRUGS (1)
  1. HABITROL [Suspect]
     Active Substance: NICOTINE
     Indication: SMOKING CESSATION THERAPY
     Route: 062
     Dates: start: 20160328

REACTIONS (3)
  - Overdose [Unknown]
  - Product quality issue [Unknown]
  - Treatment noncompliance [Unknown]

NARRATIVE: CASE EVENT DATE: 20160328
